FAERS Safety Report 15885823 (Version 1)
Quarter: 2019Q1

REPORT INFORMATION
  Report Type: Spontaneous
  Country: FR (occurrence: FR)
  Receive Date: 20190129
  Receipt Date: 20190129
  Transmission Date: 20190417
  Serious: Yes (Hospitalization)
  Sender: FDA-Public Use
  Company Number: FR-MYLANLABS-2019M1007667

PATIENT
  Age: 61 Year
  Sex: Male

DRUGS (3)
  1. KARDEGIC [Suspect]
     Active Substance: ASPIRIN DL-LYSINE
     Indication: STENT PLACEMENT
     Dosage: 75 MILLIGRAM, QD
     Route: 048
  2. PANTOPRAZOLE [Suspect]
     Active Substance: PANTOPRAZOLE
     Indication: PRODUCT USED FOR UNKNOWN INDICATION
     Dosage: 20 MILLIGRAM, QD
     Route: 048
  3. VICTOZA [Suspect]
     Active Substance: LIRAGLUTIDE
     Indication: TYPE 2 DIABETES MELLITUS
     Dosage: 1.8 MILLIGRAM, QD
     Route: 058
     Dates: start: 2013, end: 20180706

REACTIONS (1)
  - Colitis [Not Recovered/Not Resolved]

NARRATIVE: CASE EVENT DATE: 20180705
